FAERS Safety Report 10647262 (Version 2)
Quarter: 2015Q1

REPORT INFORMATION
  Report Type: Spontaneous
  Country: US (occurrence: US)
  Receive Date: 20141211
  Receipt Date: 20150122
  Transmission Date: 20150720
  Serious: Yes (Other)
  Sender: FDA-Public Use
  Company Number: US-GILEAD-2014-0125927

PATIENT
  Age: 61 Year
  Sex: Male

DRUGS (7)
  1. K-DUR [Concomitant]
     Active Substance: POTASSIUM CHLORIDE
  2. ADCIRCA [Concomitant]
     Active Substance: TADALAFIL
  3. COREG [Concomitant]
     Active Substance: CARVEDILOL
  4. DEMADEX [Concomitant]
     Active Substance: TORSEMIDE
  5. ASPIRIN                            /00002701/ [Concomitant]
     Active Substance: ASPIRIN
  6. LETAIRIS [Suspect]
     Active Substance: AMBRISENTAN
     Indication: PRODUCT USED FOR UNKNOWN INDICATION
     Dosage: 5 MG, QD
     Route: 065
  7. ALDACTONE [Concomitant]
     Active Substance: SPIRONOLACTONE

REACTIONS (2)
  - Cardiac failure congestive [Unknown]
  - Oedema [Recovering/Resolving]
